FAERS Safety Report 6656393-8 (Version None)
Quarter: 2010Q1

REPORT INFORMATION
  Report Type: 
  Country: None (occurrence: None)
  Receive Date: 20100329
  Receipt Date: 20100323
  Transmission Date: 20100710
  Serious: Yes (Hospitalization)
  Sender: FDA-Public Use
  Company Number: JP-ROCHE-632103

PATIENT
  Sex: Female

DRUGS (12)
  1. TOCILIZUMAB [Suspect]
     Indication: RHEUMATOID ARTHRITIS
     Dosage: DRUG NAME: ACTEMRA
     Route: 041
     Dates: start: 20090219, end: 20090219
  2. ERYTHROCIN LACTOBIONATE [Suspect]
     Indication: SINUSITIS
     Dosage: DRUG: ERYTHROMYCIN ETHYLSUCCINATE, DOSE FORM: PERORAL AGENT
     Route: 048
     Dates: start: 20090309, end: 20090331
  3. AZULFIDINE [Concomitant]
     Dosage: DRUG NAME: SALAZOSULFAPYRIDINE
     Route: 048
     Dates: start: 20080820
  4. PREDNISOLONE [Concomitant]
     Dosage: DOSE FORM: PERORAL AGENT
     Route: 048
     Dates: start: 20080820
  5. FOLIC ACID [Concomitant]
     Dosage: DOSE FORM: PERORAL AGENT
     Route: 048
     Dates: start: 20080627, end: 20090302
  6. CELECOXIB [Concomitant]
     Dosage: DRUG: CELECOX
     Route: 048
     Dates: start: 20080520
  7. FAMOTIDINE [Concomitant]
     Route: 048
     Dates: start: 20080520
  8. WARFARIN SODIUM [Concomitant]
     Route: 048
     Dates: start: 20080630
  9. CARVEDILOL [Concomitant]
     Route: 048
  10. SIMVASTATIN [Concomitant]
     Route: 048
  11. FERROMIA [Concomitant]
     Dosage: DOSE FORM: PERORAL AGENT
     Route: 048
     Dates: start: 20090403
  12. METHOTREXATE [Concomitant]
     Dosage: DOSE FORM: PERORAL AGENT
     Route: 048
     Dates: start: 20080627, end: 20090302

REACTIONS (6)
  - BLOOD PRESSURE DECREASED [None]
  - ERYTHEMA [None]
  - HEPATIC FUNCTION ABNORMAL [None]
  - LYMPHADENOPATHY [None]
  - PYREXIA [None]
  - SINUSITIS [None]
